FAERS Safety Report 7436002-0 (Version None)
Quarter: 2011Q2

REPORT INFORMATION
  Report Type: 
  Country: None (occurrence: None)
  Receive Date: 20110425
  Receipt Date: 20110411
  Transmission Date: 20111010
  Serious: Yes (Hospitalization)
  Sender: FDA-Public Use
  Company Number: IT-BAYER-2011-031486

PATIENT
  Age: 82 Year
  Sex: Female

DRUGS (7)
  1. SELEPARINA [Suspect]
     Indication: PROPHYLAXIS
     Dosage: DAILY DOSE 2 DF
     Route: 058
     Dates: start: 20110306, end: 20110321
  2. MINITRAN [Concomitant]
     Dosage: DAILY DOSE 1 DF
     Route: 062
  3. ASPIRIN [Suspect]
     Indication: PROPHYLAXIS
     Dosage: 100 MG, QD
     Route: 048
     Dates: start: 20090101, end: 20110321
  4. LASIX [Concomitant]
     Dosage: DAILY DOSE 25 MG
     Route: 048
  5. EUTIROX [Concomitant]
     Dosage: DAILY DOSE 1 DF
  6. LANSOPRAZOLE [Concomitant]
     Dosage: DAILY DOSE 15 MG
  7. ACTONEL [Concomitant]
     Dosage: DAILY DOSE 1 DF

REACTIONS (2)
  - SUBCUTANEOUS HAEMATOMA [None]
  - ANAEMIA [None]
